FAERS Safety Report 4976248-4 (Version None)
Quarter: 2006Q2

REPORT INFORMATION
  Report Type: 
  Country: None (occurrence: None)
  Receive Date: 20060412
  Receipt Date: 20060328
  Transmission Date: 20061013
  Serious: Yes (Life-Threatening, Hospitalization, Other)
  Sender: FDA-Public Use
  Company Number: 2006-01260

PATIENT
  Age: 57 Year
  Sex: Male

DRUGS (19)
  1. VELCADE [Suspect]
     Indication: MULTIPLE MYELOMA
     Dosage: 2.30 MG, 2/WEEK, IV BOLUS
     Route: 040
     Dates: start: 20050531, end: 20050603
  2. DOXORUBICIN HCL [Suspect]
     Indication: MULTIPLE MYELOMA
     Dosage: 9.00 MG/M2, QD, IV BOLUS
     Route: 040
     Dates: start: 20050531, end: 20050603
  3. DIFLUCAN [Concomitant]
  4. COTRIM [Concomitant]
  5. FENTANYL [Concomitant]
  6. SEVERDOL (MORPHINE SULFATE) [Concomitant]
  7. ACETAMINOPHEN [Concomitant]
  8. OXYCODONE HCL [Concomitant]
  9. CIPROFLOXACIN [Concomitant]
  10. FLUCONAZOLE [Concomitant]
  11. MORPHINE [Concomitant]
  12. NEXIUM [Concomitant]
  13. COMBIVENT [Concomitant]
  14. SODIUM CHLORIDE 0.9% [Concomitant]
  15. CO-TRIMOXAZOL ^FATOL^ (SULFAMETHAZOLE, TRIMETHOPRIM) [Concomitant]
  16. DALTEPARIN SODIUM (HEPARIN-FRACTION, SODIUM SALT) [Concomitant]
  17. HEPARIN [Concomitant]
  18. CELEBREX [Concomitant]
  19. DEXAMETHASONE [Suspect]
     Indication: MULTIPLE MYELOMA
     Dosage: 40.00 MG, QOD, ORAL
     Route: 048
     Dates: start: 20050531, end: 20050603

REACTIONS (10)
  - DELIRIUM [None]
  - ELECTROLYTE IMBALANCE [None]
  - EMPHYSEMA [None]
  - HYPONATRAEMIA [None]
  - ORAL INTAKE REDUCED [None]
  - PNEUMOTHORAX [None]
  - PULMONARY EMBOLISM [None]
  - RESPIRATORY FAILURE [None]
  - RIB FRACTURE [None]
  - STERNAL FRACTURE [None]
